FAERS Safety Report 7035394-4 (Version None)
Quarter: 2010Q4

REPORT INFORMATION
  Report Type: 
  Country: None (occurrence: None)
  Receive Date: 20101007
  Receipt Date: 20101007
  Transmission Date: 20110411
  Serious: Yes (Life-Threatening, Hospitalization)
  Sender: FDA-Public Use
  Company Number: None

PATIENT
  Age: 75 Year
  Sex: Male
  Weight: 79 kg

DRUGS (1)
  1. ADENOSINE [Suspect]
     Indication: SCAN MYOCARDIAL PERFUSION
     Dosage: UNKNOWN-140MCG/KG/MI O X 3MIN?- ONCE IV
     Route: 042
     Dates: start: 20100812, end: 20100812

REACTIONS (3)
  - DRUG HYPERSENSITIVITY [None]
  - NO THERAPEUTIC RESPONSE [None]
  - RESPIRATORY ARREST [None]
